FAERS Safety Report 9058457 (Version 1)
Quarter: 2013Q1

REPORT INFORMATION
  Report Type: Spontaneous
  Country: US (occurrence: None)
  Receive Date: 20130205
  Receipt Date: 20130205
  Transmission Date: 20140127
  Serious: No
  Sender: FDA-Public Use
  Company Number: None

PATIENT
  Age: 56 Year
  Sex: Female
  Weight: 75.75 kg

DRUGS (1)
  1. AMITIZA 24 MCG TAKEDA [Suspect]
     Indication: CONSTIPATION
     Dosage: 1 2 TIMES A DAY
     Dates: start: 20120901, end: 20120913

REACTIONS (5)
  - Depression [None]
  - Weight increased [None]
  - Abdominal distension [None]
  - Fatigue [None]
  - Headache [None]
